FAERS Safety Report 5080716-7 (Version None)
Quarter: 2006Q3

REPORT INFORMATION
  Report Type: 
  Country: None (occurrence: None)
  Receive Date: 20060809
  Receipt Date: 20060728
  Transmission Date: 20061208
  Serious: Yes (Death)
  Sender: FDA-Public Use
  Company Number: HQWYE804312APR06

PATIENT
  Age: 63 Year
  Sex: Male

DRUGS (1)
  1. MYLOTARG [Suspect]
     Indication: ACUTE MYELOID LEUKAEMIA RECURRENT
     Dosage: A SINGLE 9 MG/M^2 DOSE INTRAVENOUS DRIP
     Route: 041
     Dates: start: 20060106, end: 20060106

REACTIONS (11)
  - BONE MARROW TRANSPLANT [None]
  - FEBRILE NEUTROPENIA [None]
  - HAEMODIALYSIS [None]
  - HEPATIC INFARCTION [None]
  - HEPATIC INFECTION [None]
  - LIVER DISORDER [None]
  - LYMPHADENITIS [None]
  - MULTI-ORGAN FAILURE [None]
  - RENAL DISORDER [None]
  - SEPSIS [None]
  - WHITE BLOOD CELL COUNT DECREASED [None]
